FAERS Safety Report 15904700 (Version 1)
Quarter: 2019Q1

REPORT INFORMATION
  Report Type: Report from Study
  Country: CN (occurrence: CN)
  Receive Date: 20190204
  Receipt Date: 20190204
  Transmission Date: 20190417
  Serious: Yes (Other)
  Sender: FDA-Public Use
  Company Number: CN-ROCHE-2252425

PATIENT

DRUGS (1)
  1. CAPECITABINE. [Suspect]
     Active Substance: CAPECITABINE
     Indication: NASOPHARYNGEAL CANCER
     Route: 048

REACTIONS (5)
  - Anaphylactic reaction [Unknown]
  - Skin exfoliation [Unknown]
  - Rash [Unknown]
  - Headache [Unknown]
  - Hypoaesthesia [Unknown]
